FAERS Safety Report 21573764 (Version 2)
Quarter: 2023Q4

REPORT INFORMATION
  Report Type: Spontaneous
  Country: CA (occurrence: CA)
  Receive Date: 20221109
  Receipt Date: 20231211
  Transmission Date: 20240109
  Serious: Yes (Hospitalization, Other)
  Sender: FDA-Public Use
  Company Number: CA-AstraZeneca-2021A111733

PATIENT
  Age: 72 Year
  Sex: Male

DRUGS (72)
  1. OMNARIS [Suspect]
     Active Substance: CICLESONIDE
     Route: 065
  2. OMNARIS [Suspect]
     Active Substance: CICLESONIDE
  3. OMNARIS [Suspect]
     Active Substance: CICLESONIDE
  4. OMNARIS [Suspect]
     Active Substance: CICLESONIDE
  5. CICLESONIDE [Suspect]
     Active Substance: CICLESONIDE
     Route: 065
  6. BUDESONIDE [Suspect]
     Active Substance: BUDESONIDE
     Route: 048
  7. ELIQUIS [Suspect]
     Active Substance: APIXABAN
     Route: 065
  8. AMOXICILLIN\CLAVULANATE POTASSIUM [Suspect]
     Active Substance: AMOXICILLIN\CLAVULANATE POTASSIUM
     Route: 065
  9. DUTASTERIDE [Suspect]
     Active Substance: DUTASTERIDE
     Route: 065
  10. DUTASTERIDE [Suspect]
     Active Substance: DUTASTERIDE
     Route: 065
  11. DUTASTERIDE [Suspect]
     Active Substance: DUTASTERIDE
     Route: 065
  12. TIAZAC [Suspect]
     Active Substance: DILTIAZEM HYDROCHLORIDE
     Route: 065
  13. TIAZAC [Suspect]
     Active Substance: DILTIAZEM HYDROCHLORIDE
  14. DOXAZOSIN MESYLATE [Suspect]
     Active Substance: DOXAZOSIN MESYLATE
     Route: 065
  15. DOXAZOSIN MESYLATE [Suspect]
     Active Substance: DOXAZOSIN MESYLATE
     Route: 065
  16. DOXAZOSIN MESYLATE [Suspect]
     Active Substance: DOXAZOSIN MESYLATE
     Route: 065
  17. DOXAZOSIN MESYLATE [Suspect]
     Active Substance: DOXAZOSIN MESYLATE
     Route: 065
  18. DOXAZOSIN MESYLATE [Suspect]
     Active Substance: DOXAZOSIN MESYLATE
     Route: 065
  19. ESCITALOPRAM OXALATE [Suspect]
     Active Substance: ESCITALOPRAM OXALATE
     Route: 065
  20. ESCITALOPRAM OXALATE [Suspect]
     Active Substance: ESCITALOPRAM OXALATE
     Route: 065
  21. ESCITALOPRAM OXALATE [Suspect]
     Active Substance: ESCITALOPRAM OXALATE
     Route: 065
  22. ADVAIR HFA [Suspect]
     Active Substance: FLUTICASONE PROPIONATE\SALMETEROL XINAFOATE
     Route: 065
  23. ZENHALE [Suspect]
     Active Substance: FORMOTEROL FUMARATE\MOMETASONE FUROATE
     Route: 065
  24. ZENHALE [Suspect]
     Active Substance: FORMOTEROL FUMARATE\MOMETASONE FUROATE
  25. ZENHALE [Suspect]
     Active Substance: FORMOTEROL FUMARATE\MOMETASONE FUROATE
  26. ZENHALE [Suspect]
     Active Substance: FORMOTEROL FUMARATE\MOMETASONE FUROATE
  27. ZENHALE [Suspect]
     Active Substance: FORMOTEROL FUMARATE\MOMETASONE FUROATE
  28. ZENHALE [Suspect]
     Active Substance: FORMOTEROL FUMARATE\MOMETASONE FUROATE
     Route: 065
  29. ZENHALE [Suspect]
     Active Substance: FORMOTEROL FUMARATE\MOMETASONE FUROATE
  30. LEVOFLOXACIN [Suspect]
     Active Substance: LEVOFLOXACIN
     Route: 065
  31. LEVOFLOXACIN [Suspect]
     Active Substance: LEVOFLOXACIN
     Route: 065
  32. LEVOFLOXACIN [Suspect]
     Active Substance: LEVOFLOXACIN
     Route: 065
  33. MOXIFLOXACIN [Suspect]
     Active Substance: MOXIFLOXACIN
     Route: 065
  34. PREDNISONE [Suspect]
     Active Substance: PREDNISONE
     Indication: Product used for unknown indication
     Route: 065
  35. PREDNISONE [Suspect]
     Active Substance: PREDNISONE
     Route: 065
  36. ALBUTEROL [Suspect]
     Active Substance: ALBUTEROL
     Indication: Asthma
     Route: 065
  37. ALBUTEROL [Suspect]
     Active Substance: ALBUTEROL
     Route: 065
  38. ALBUTEROL [Suspect]
     Active Substance: ALBUTEROL
     Route: 065
  39. SPIRIVA [Suspect]
     Active Substance: TIOTROPIUM BROMIDE MONOHYDRATE
     Route: 065
  40. SPIRIVA [Suspect]
     Active Substance: TIOTROPIUM BROMIDE MONOHYDRATE
     Route: 065
  41. SPIRIVA [Suspect]
     Active Substance: TIOTROPIUM BROMIDE MONOHYDRATE
     Route: 065
  42. SPIRIVA [Suspect]
     Active Substance: TIOTROPIUM BROMIDE MONOHYDRATE
     Route: 065
  43. CALCIUM\CHOLECALCIFEROL [Suspect]
     Active Substance: CALCIUM\CHOLECALCIFEROL
  44. DILTIAZEM [Suspect]
     Active Substance: DILTIAZEM
  45. DILTIAZEM [Suspect]
     Active Substance: DILTIAZEM
  46. DILTIAZEM [Suspect]
     Active Substance: DILTIAZEM
  47. DILTIAZEM [Suspect]
     Active Substance: DILTIAZEM
  48. DILTIAZEM [Suspect]
     Active Substance: DILTIAZEM
  49. DILTIAZEM [Suspect]
     Active Substance: DILTIAZEM
  50. DILTIAZEM [Suspect]
     Active Substance: DILTIAZEM
  51. DILTIAZEM [Suspect]
     Active Substance: DILTIAZEM
  52. DILTIAZEM [Suspect]
     Active Substance: DILTIAZEM
  53. DILTIAZEM [Suspect]
     Active Substance: DILTIAZEM
  54. APIXABAN [Suspect]
     Active Substance: APIXABAN
  55. ERGOCALCIFEROL [Suspect]
     Active Substance: ERGOCALCIFEROL
  56. FLUTICASONE PROPIONATE\SALMETEROL XINAFOATE [Suspect]
     Active Substance: FLUTICASONE PROPIONATE\SALMETEROL XINAFOATE
  57. FLUTICASONE PROPIONATE\SALMETEROL XINAFOATE [Suspect]
     Active Substance: FLUTICASONE PROPIONATE\SALMETEROL XINAFOATE
  58. FLUTICASONE PROPIONATE\SALMETEROL XINAFOATE [Suspect]
     Active Substance: FLUTICASONE PROPIONATE\SALMETEROL XINAFOATE
  59. MAGNESIUM OXIDE [Suspect]
     Active Substance: MAGNESIUM OXIDE
  60. MOMETASONE FUROATE [Suspect]
     Active Substance: MOMETASONE FUROATE
  61. MOXIFLOXACIN [Suspect]
     Active Substance: MOXIFLOXACIN
     Route: 065
  62. TIOTROPIUM BROMIDE [Suspect]
     Active Substance: TIOTROPIUM BROMIDE
  63. VITAMIN D [Suspect]
     Active Substance: VITAMIN D NOS
  64. VITAMIN D3 [Suspect]
     Active Substance: CHOLECALCIFEROL
  65. VITAMIN D3 [Suspect]
     Active Substance: CHOLECALCIFEROL
  66. AMOXICILLIN\CLAVULANATE POTASSIUM [Suspect]
     Active Substance: AMOXICILLIN\CLAVULANATE POTASSIUM
  67. DILTIAZEM HYDROCHLORIDE [Suspect]
     Active Substance: DILTIAZEM HYDROCHLORIDE
  68. ROSUVASTATIN [Concomitant]
     Active Substance: ROSUVASTATIN
     Route: 058
  69. ROSUVASTATIN [Concomitant]
     Active Substance: ROSUVASTATIN
  70. ROSUVASTATIN [Concomitant]
     Active Substance: ROSUVASTATIN
  71. CALCIUM CARBONATE\CHOLECALCIFEROL [Concomitant]
     Active Substance: CALCIUM CARBONATE\CHOLECALCIFEROL
  72. AMOXICILLIN AND CLAVULANATE POTASSIUM [Concomitant]
     Active Substance: AMOXICILLIN\CLAVULANATE POTASSIUM

REACTIONS (21)
  - Arteriosclerosis [Unknown]
  - Arteriosclerosis coronary artery [Unknown]
  - Asthma [Unknown]
  - Condition aggravated [Unknown]
  - Conjunctivitis allergic [Unknown]
  - Dust allergy [Unknown]
  - Dyspnoea [Unknown]
  - Full blood count abnormal [Unknown]
  - Hypoxia [Unknown]
  - Loss of personal independence in daily activities [Unknown]
  - Mite allergy [Unknown]
  - Mycotic allergy [Unknown]
  - Nodule [Unknown]
  - Normochromic normocytic anaemia [Unknown]
  - Productive cough [Unknown]
  - Pulmonary embolism [Unknown]
  - Sleep disorder due to a general medical condition [Unknown]
  - Spirometry abnormal [Unknown]
  - Thrombosis [Unknown]
  - Wheezing [Unknown]
  - Therapeutic product effect incomplete [Unknown]
